FAERS Safety Report 7227632-X (Version None)
Quarter: 2011Q1

REPORT INFORMATION
  Report Type: 
  Country: None (occurrence: None)
  Receive Date: 20110114
  Receipt Date: 20110107
  Transmission Date: 20110831
  Serious: Yes (Other)
  Sender: FDA-Public Use
  Company Number: US-PFIZER INC-2011004870

PATIENT
  Sex: Female
  Weight: 64 kg

DRUGS (4)
  1. EFFEXOR XR [Suspect]
     Indication: BIPOLAR DISORDER
     Dosage: 75 MG, 1X/DAY
     Route: 048
     Dates: start: 20101001
  2. EFFEXOR XR [Suspect]
     Indication: ANXIETY DISORDER
  3. XANAX [Concomitant]
     Indication: ANXIETY
     Dosage: UNK
  4. LAMICTAL [Concomitant]
     Indication: AFFECTIVE DISORDER
     Dosage: UNK

REACTIONS (4)
  - DEPRESSION [None]
  - MUSCLE TWITCHING [None]
  - ANXIETY [None]
  - TREMOR [None]
